FAERS Safety Report 5276104-0 (Version None)
Quarter: 2007Q1

REPORT INFORMATION
  Report Type: 
  Country: None (occurrence: None)
  Receive Date: 20070326
  Receipt Date: 20070315
  Transmission Date: 20070707
  Serious: Yes (Death, Other)
  Sender: FDA-Public Use
  Company Number: HQWYE574930JAN06

PATIENT
  Sex: Female
  Weight: 70 kg

DRUGS (5)
  1. GEMTUZUMAB OZOGAMICIN [Suspect]
     Indication: ACUTE MYELOID LEUKAEMIA
     Dosage: 10 MG
     Route: 042
     Dates: start: 20041229, end: 20041229
  2. LEVOFLOXACIN [Concomitant]
     Indication: PROPHYLAXIS
     Dosage: DOSE NOT PROVIDED
     Dates: start: 20050127
  3. CYTARABINE [Suspect]
     Indication: ACUTE MYELOID LEUKAEMIA
     Dosage: 170 MG; CUMULATIVE DOSE 1190 MG
     Dates: start: 20050111, end: 20050117
  4. MITOXANTRONE [Suspect]
     Indication: ACUTE MYELOID LEUKAEMIA
     Dosage: DOSE 12MG; CUMULATIVE DOSE 36 MG
     Dates: start: 20050111, end: 20050115
  5. ETOPOSIDE [Suspect]
     Indication: ACUTE MYELOID LEUKAEMIA
     Dosage: DOSE 170 MG; CUMULATIVE DOSE 510 MG
     Dates: start: 20050111, end: 20050113

REACTIONS (2)
  - LUNG INFECTION [None]
  - RESPIRATORY FAILURE [None]
